FAERS Safety Report 25993767 (Version 1)
Quarter: 2025Q4

REPORT INFORMATION
  Report Type: Spontaneous
  Country: EU (occurrence: EU)
  Receive Date: 20251104
  Receipt Date: 20251104
  Transmission Date: 20260118
  Serious: Yes (Hospitalization)
  Sender: ROCHE
  Company Number: None

PATIENT
  Age: 13 Year
  Sex: Male
  Weight: 49 kg

DRUGS (1)
  1. XOLAIR [Suspect]
     Active Substance: OMALIZUMAB
     Indication: Food allergy
     Dosage: UNK; PATIENT HAS RECEIVED 2 DOSES IN TOTAL.ON 18SEP2025 PATIENT RECEIVED 600 MG IN TOTAL. ON 01OCT20
     Route: 058
     Dates: start: 20250918, end: 20251001

REACTIONS (2)
  - Urticaria [Recovered/Resolved]
  - Off label use [Unknown]

NARRATIVE: CASE EVENT DATE: 20250918
